FAERS Safety Report 6806059-6 (Version None)
Quarter: 2010Q2

REPORT INFORMATION
  Report Type: 
  Country: None (occurrence: None)
  Receive Date: 20100629
  Receipt Date: 20080415
  Transmission Date: 20101027
  Serious: Yes (Hospitalization, Other)
  Sender: FDA-Public Use
  Company Number: US-PFIZER INC-2007094417

PATIENT
  Age: 58 Year
  Sex: Female

DRUGS (1)
  1. ARTHROTEC [Suspect]
     Dosage: 150 MG,TWICE DAILY
     Route: 048
     Dates: start: 20071016

REACTIONS (4)
  - ABDOMINAL PAIN [None]
  - DIARRHOEA [None]
  - FAECES DISCOLOURED [None]
  - GASTRITIS EROSIVE [None]
